FAERS Safety Report 7651510-5 (Version None)
Quarter: 2011Q3

REPORT INFORMATION
  Report Type: 
  Country: None (occurrence: None)
  Receive Date: 20110802
  Receipt Date: 20110725
  Transmission Date: 20111222
  Serious: Yes (Hospitalization)
  Sender: FDA-Public Use
  Company Number: PHHY2011NL67035

PATIENT
  Sex: Male

DRUGS (3)
  1. ZOMETA [Suspect]
     Indication: PROSTATE CANCER METASTATIC
     Dosage: 04 MG/05 ML ONCE PER 28 DAYS
     Dates: start: 20110410
  2. ZOMETA [Suspect]
     Dosage: 04 MG/05 ML ONCE PER 28 DAYS
     Dates: start: 20110505
  3. ZOMETA [Suspect]
     Dosage: 04 MG/05 ML ONCE PER 28 DAYS
     Dates: start: 20110530

REACTIONS (4)
  - GENERAL PHYSICAL HEALTH DETERIORATION [None]
  - CHEST DISCOMFORT [None]
  - PULMONARY OEDEMA [None]
  - MALAISE [None]
